FAERS Safety Report 25768714 (Version 5)
Quarter: 2025Q4

REPORT INFORMATION
  Report Type: Spontaneous
  Country: JP (occurrence: JP)
  Receive Date: 20250905
  Receipt Date: 20251205
  Transmission Date: 20260117
  Serious: Yes (Death, Hospitalization, Other)
  Sender: PFIZER
  Company Number: JP-GENMAB-2025-02643

PATIENT
  Age: 66 Year
  Sex: Female
  Weight: 45.5 kg

DRUGS (5)
  1. TIVDAK [Suspect]
     Active Substance: TISOTUMAB VEDOTIN-TFTV
     Indication: Cervix carcinoma recurrent
     Dosage: 2 MILLIGRAM/KILOGRAM(BODY WEIGHT), ADMINISTERED OVER AT LEAST 30 MINUTES
     Route: 042
     Dates: start: 20250808, end: 20250808
  2. LOPERAMIDE HYDROCHLORIDE [Concomitant]
     Active Substance: LOPERAMIDE HYDROCHLORIDE
     Dosage: UNK, DURATION OF ADMINISTRATION: THREE MONTHS
     Dates: start: 2025, end: 2025
  3. MIYA-BM [Concomitant]
     Active Substance: CLOSTRIDIUM BUTYRICUM SPORES STRAIN M-55
     Dosage: UNK, DURATION OF ADMINISTRATION: FOUR MONTHS
     Dates: start: 2025, end: 2025
  4. ACETAMINOPHEN [Concomitant]
     Active Substance: ACETAMINOPHEN
     Dosage: UNK, DURATION OF ADMINISTRATION: OVER 1 YEAR
  5. METOCLOPRAMIDE [Concomitant]
     Active Substance: METOCLOPRAMIDE
     Dosage: UNK, DURATION OF ADMINISTRATION: 10 DAYS
     Dates: start: 202507, end: 2025

REACTIONS (8)
  - Gastrointestinal haemorrhage [Fatal]
  - Intra-abdominal haemorrhage [Fatal]
  - Internal haemorrhage [Fatal]
  - Loss of consciousness [Fatal]
  - Haemoglobin decreased [Not Recovered/Not Resolved]
  - Platelet count decreased [Not Recovered/Not Resolved]
  - White blood cell count decreased [Not Recovered/Not Resolved]
  - Neutrophil count decreased [Not Recovered/Not Resolved]

NARRATIVE: CASE EVENT DATE: 20250818
